FAERS Safety Report 4448147-8 (Version None)
Quarter: 2004Q3

REPORT INFORMATION
  Report Type: 
  Country: None (occurrence: None)
  Receive Date: 20040812
  Receipt Date: 20040617
  Transmission Date: 20050211
  Serious: No
  Sender: FDA-Public Use
  Company Number: USA040670429

PATIENT
  Age: 68 Year
  Sex: Male

DRUGS (4)
  1. CIALIS [Suspect]
     Dosage: 20 MG DAY
     Dates: start: 20040601
  2. ASPIRIN [Concomitant]
  3. PLAVIX [Concomitant]
  4. LIPITOR [Concomitant]

REACTIONS (6)
  - BACK PAIN [None]
  - DYSPEPSIA [None]
  - HEADACHE [None]
  - INSOMNIA [None]
  - IRRITABILITY [None]
  - PAIN IN EXTREMITY [None]
